FAERS Safety Report 21207862 (Version 2)
Quarter: 2022Q3

REPORT INFORMATION
  Report Type: Spontaneous
  Country: DE (occurrence: DE)
  Receive Date: 20220812
  Receipt Date: 20220816
  Transmission Date: 20221027
  Serious: Yes (Death, Life-Threatening, Other)
  Sender: FDA-Public Use
  Company Number: None

PATIENT
  Age: 79 Year
  Sex: Female
  Weight: 73 kg

DRUGS (3)
  1. PALBOCICLIB [Suspect]
     Active Substance: PALBOCICLIB
     Dosage: 75 MG, 1X/DAY
     Route: 048
     Dates: start: 202108, end: 202202
  2. FASLODEX [Concomitant]
     Active Substance: FULVESTRANT
     Indication: Breast cancer metastatic
     Dosage: FREQ:28 D;2X 250MG/ Q28DAY
     Route: 030
     Dates: start: 202108, end: 202202
  3. ALENDRONAT [Concomitant]
     Active Substance: ALENDRONATE SODIUM
     Indication: Breast cancer metastatic
     Route: 048
     Dates: start: 202108, end: 202202

REACTIONS (3)
  - Sepsis [Fatal]
  - Acute respiratory distress syndrome [Fatal]
  - Atypical pneumonia [Fatal]

NARRATIVE: CASE EVENT DATE: 20220213
